FAERS Safety Report 20462041 (Version 1)
Quarter: 2022Q1

REPORT INFORMATION
  Report Type: Spontaneous
  Country: DE (occurrence: None)
  Receive Date: 20220211
  Receipt Date: 20220211
  Transmission Date: 20220423
  Serious: Yes (Hospitalization, Other)
  Sender: FDA-Public Use
  Company Number: None

PATIENT
  Age: 30 Year
  Sex: Female
  Weight: 68 kg

DRUGS (1)
  1. PROPOFOL [Suspect]
     Active Substance: PROPOFOL
     Indication: Benign breast lump removal
     Dosage: UNK
     Route: 042
     Dates: start: 20210127, end: 20210127

REACTIONS (18)
  - Myelitis [Recovered/Resolved with Sequelae]
  - Disorientation [Recovered/Resolved with Sequelae]
  - Disturbance in attention [Recovered/Resolved with Sequelae]
  - Dizziness [Not Recovered/Not Resolved]
  - Amnesia [Recovered/Resolved with Sequelae]
  - Nervous system disorder [Recovered/Resolved with Sequelae]
  - Physical disability [Unknown]
  - Postoperative delirium [Recovered/Resolved with Sequelae]
  - Disturbance in attention [Recovered/Resolved with Sequelae]
  - Gait disturbance [Recovered/Resolved with Sequelae]
  - Paraparesis [Unknown]
  - Speech disorder [Recovered/Resolved with Sequelae]
  - Fine motor skill dysfunction [Unknown]
  - Coordination abnormal [Recovered/Resolved with Sequelae]
  - Nausea [Not Recovered/Not Resolved]
  - Memory impairment [Recovered/Resolved with Sequelae]
  - Wheelchair user [Unknown]
  - Disorientation [Recovered/Resolved with Sequelae]

NARRATIVE: CASE EVENT DATE: 20210127
